FAERS Safety Report 21612470 (Version 1)
Quarter: 2022Q4

REPORT INFORMATION
  Report Type: Report from Study
  Country: CO (occurrence: CO)
  Receive Date: 20221118
  Receipt Date: 20221118
  Transmission Date: 20230112
  Serious: Yes (Other)
  Sender: FDA-Public Use
  Company Number: CO-002147023-NVSC2022CO258620

PATIENT
  Age: 68 Year
  Sex: Female

DRUGS (2)
  1. LOSARTAN [Suspect]
     Active Substance: LOSARTAN
     Indication: Hypertension
     Dosage: 50 MG, 12 HOURS (STARTED 3 YEARS AGO)
     Route: 048
  2. INSULIN NOS [Concomitant]
     Active Substance: INSULIN NOS
     Indication: Diabetes mellitus
     Dosage: UNK, 24 HOURS (STARTED 10 YEARS)
     Route: 058

REACTIONS (2)
  - Age-related macular degeneration [Unknown]
  - Off label use [Unknown]

NARRATIVE: CASE EVENT DATE: 20220301
